FAERS Safety Report 23281682 (Version 1)
Quarter: 2023Q4

REPORT INFORMATION
  Report Type: Spontaneous
  Country: AU (occurrence: AU)
  Receive Date: 20231211
  Receipt Date: 20231211
  Transmission Date: 20240110
  Serious: Yes (Hospitalization, Other)
  Sender: FDA-Public Use
  Company Number: AU-MLMSERVICE-20231123-4686328-1

PATIENT
  Age: 34 Year
  Sex: Male

DRUGS (2)
  1. CLOZAPINE [Suspect]
     Active Substance: CLOZAPINE
     Indication: Schizophrenia
  2. CLOZAPINE [Suspect]
     Active Substance: CLOZAPINE
     Indication: Schizophrenia
     Dosage: LAST DOSE INCREASED 6 MONTH AGO

REACTIONS (3)
  - Febrile neutropenia [Recovering/Resolving]
  - Antipsychotic drug level above therapeutic [Unknown]
  - Liver function test abnormal [Recovered/Resolved]
